FAERS Safety Report 7536518-2 (Version None)
Quarter: 2011Q2

REPORT INFORMATION
  Report Type: 
  Country: None (occurrence: None)
  Receive Date: 20110524
  Receipt Date: 20110125
  Transmission Date: 20111010
  Serious: Yes (Hospitalization, Other)
  Sender: FDA-Public Use
  Company Number: 026227

PATIENT
  Sex: Female
  Weight: 97.977 kg

DRUGS (6)
  1. VITAMINS NOS [Concomitant]
  2. FOLIC ACID [Concomitant]
     Dates: start: 20100501
  3. CIMZIA [Suspect]
     Indication: CROHN'S DISEASE
     Dosage: (400 MG 1X/28 DAYS SUBCUTANEOUS)
     Route: 058
     Dates: start: 20100201
  4. PROZAC /0724401/ [Concomitant]
     Dates: start: 20030101
  5. FLORASTOR [Concomitant]
  6. VANCOMYCIN [Concomitant]
     Dates: start: 20100901

REACTIONS (3)
  - PREGNANCY [None]
  - URINARY TRACT INFECTION [None]
  - CROHN'S DISEASE [None]
